FAERS Safety Report 17233639 (Version 6)
Quarter: 2020Q2

REPORT INFORMATION
  Report Type: Report from Study
  Country: CA (occurrence: CA)
  Receive Date: 20200105
  Receipt Date: 20200622
  Transmission Date: 20200713
  Serious: Yes (Disabling, Other)
  Sender: FDA-Public Use
  Company Number: CA-BEH-2019111305

PATIENT
  Age: 71 Year
  Sex: Female

DRUGS (5)
  1. LIPITOR [Concomitant]
     Active Substance: ATORVASTATIN CALCIUM
     Route: 065
  2. HIZENTRA [Suspect]
     Active Substance: HUMAN IMMUNOGLOBULIN G
     Indication: SECONDARY IMMUNODEFICIENCY
     Dosage: 10 GRAM, QW
     Route: 058
     Dates: start: 20191218
  3. VALTREX [Concomitant]
     Active Substance: VALACYCLOVIR HYDROCHLORIDE
     Route: 065
  4. CYMBALTA [Concomitant]
     Active Substance: DULOXETINE HYDROCHLORIDE
     Route: 065
  5. HIZENTRA [Suspect]
     Active Substance: HUMAN IMMUNOGLOBULIN G
     Indication: CHRONIC LYMPHOCYTIC LEUKAEMIA
     Dosage: 10 GRAM, TOT
     Route: 058
     Dates: start: 20191224

REACTIONS (18)
  - Headache [Recovered/Resolved with Sequelae]
  - Diarrhoea [Not Recovered/Not Resolved]
  - Anxiety [Not Recovered/Not Resolved]
  - Back pain [Not Recovered/Not Resolved]
  - Physical disability [Recovered/Resolved]
  - Neck pain [Recovered/Resolved]
  - Infusion site mass [Recovered/Resolved with Sequelae]
  - Headache [Recovered/Resolved with Sequelae]
  - No adverse event [Unknown]
  - Therapy cessation [Unknown]
  - Headache [Recovered/Resolved with Sequelae]
  - Headache [Recovered/Resolved with Sequelae]
  - Headache [Recovered/Resolved with Sequelae]
  - Wrong technique in product usage process [Unknown]
  - Pyrexia [Unknown]
  - Meningitis aseptic [Unknown]
  - Fatigue [Not Recovered/Not Resolved]
  - Migraine [Not Recovered/Not Resolved]

NARRATIVE: CASE EVENT DATE: 201912
